FAERS Safety Report 4920807-1 (Version None)
Quarter: 2006Q1

REPORT INFORMATION
  Report Type: 
  Country: None (occurrence: None)
  Receive Date: 20060113
  Receipt Date: 20050919
  Transmission Date: 20060701
  Serious: No
  Sender: FDA-Public Use
  Company Number: 2005SP002965

PATIENT
  Age: 66 Year
  Sex: Female
  Weight: 100.6985 kg

DRUGS (14)
  1. LUNESTA [Suspect]
     Dosage: 3 MG;HS
     Dates: start: 20050913, end: 20050913
  2. CALCIUM MAGNESIUM ZINC [Concomitant]
  3. ASCORBIC ACID [Concomitant]
  4. FOLIC ACID [Concomitant]
  5. ACETYLSALICYLIC ACID SRT [Concomitant]
  6. XANAX [Concomitant]
  7. AMBIEN [Concomitant]
  8. POTASSIUM CHLORIDE [Concomitant]
  9. HYDROCHLOROTHIAZIDE [Concomitant]
  10. ACCUPRIL [Concomitant]
  11. SIMVASTATIN [Concomitant]
  12. NEXIUM [Concomitant]
  13. TOPROL-XL [Concomitant]
  14. AMLODIPINE BESYLATE [Concomitant]

REACTIONS (4)
  - DRUG INEFFECTIVE [None]
  - DYSGEUSIA [None]
  - INITIAL INSOMNIA [None]
  - PRURITUS GENERALISED [None]
